FAERS Safety Report 6654461-8 (Version None)
Quarter: 2010Q1

REPORT INFORMATION
  Report Type: 
  Country: None (occurrence: None)
  Receive Date: 20100326
  Receipt Date: 20100318
  Transmission Date: 20100710
  Serious: Yes (Other)
  Sender: FDA-Public Use
  Company Number: GXKR2010GB03260

PATIENT
  Age: 50 Year
  Sex: Female
  Weight: 78.6 kg

DRUGS (2)
  1. DICLOFENAC (NGX) [Suspect]
     Indication: PAIN
     Dosage: 1 DF, TID
     Route: 048
     Dates: start: 20100112, end: 20100115
  2. DICLOFENAC (NGX) [Suspect]
     Indication: INFLAMMATION

REACTIONS (1)
  - HYPOAESTHESIA [None]
